FAERS Safety Report 24959252 (Version 1)
Quarter: 2025Q1

REPORT INFORMATION
  Report Type: Spontaneous
  Country: CN (occurrence: CN)
  Receive Date: 20250212
  Receipt Date: 20250212
  Transmission Date: 20250409
  Serious: Yes (Hospitalization)
  Sender: STRIDES
  Company Number: CN-STRIDES ARCOLAB LIMITED-2025SP002020

PATIENT
  Age: 7 Year
  Sex: Male

DRUGS (1)
  1. AZITHROMYCIN [Suspect]
     Active Substance: AZITHROMYCIN
     Indication: Cough
     Route: 048

REACTIONS (8)
  - Haemophilus infection [Unknown]
  - Bordetella infection [Unknown]
  - Pertussis [Unknown]
  - Pneumonia streptococcal [Unknown]
  - Cough [Unknown]
  - Toxic epidermal necrolysis [Recovered/Resolved]
  - Pyrexia [Recovered/Resolved]
  - Drug ineffective for unapproved indication [Unknown]
